FAERS Safety Report 8049251-8 (Version None)
Quarter: 2012Q1

REPORT INFORMATION
  Report Type: 
  Country: None (occurrence: None)
  Receive Date: 20120117
  Receipt Date: 20120109
  Transmission Date: 20120608
  Serious: Yes (Hospitalization)
  Sender: FDA-Public Use
  Company Number: US-AMGEN-QUU384077

PATIENT
  Age: 66 Year
  Sex: Male

DRUGS (2)
  1. ENBREL [Suspect]
     Indication: PSORIATIC ARTHROPATHY
  2. ENBREL [Suspect]
     Indication: PSORIASIS
     Dosage: 50 MG, QWK
     Route: 058
     Dates: start: 20070101

REACTIONS (8)
  - PSORIASIS [None]
  - TOOTH ABSCESS [None]
  - ANGIOPLASTY [None]
  - TOOTHACHE [None]
  - STENT REMOVAL [None]
  - STENT PLACEMENT [None]
  - CARDIAC DISORDER [None]
  - CATHETERISATION CARDIAC [None]
